FAERS Safety Report 15287077 (Version 1)
Quarter: 2018Q3

REPORT INFORMATION
  Report Type: Spontaneous
  Country: FR (occurrence: FR)
  Receive Date: 20180817
  Receipt Date: 20180817
  Transmission Date: 20181010
  Serious: Yes (Hospitalization)
  Sender: FDA-Public Use
  Company Number: FR-TEVA-2018-FR-942144

PATIENT
  Age: 65 Year
  Sex: Male
  Weight: 90 kg

DRUGS (7)
  1. VANCOMYCINE [Suspect]
     Active Substance: VANCOMYCIN
     Indication: OSTEOMYELITIS
     Dosage: 2.5 GRAM DAILY;
     Route: 042
     Dates: start: 20171031, end: 20171106
  2. FORTUM [Suspect]
     Active Substance: CEFTAZIDIME
     Indication: OSTEOMYELITIS
     Dosage: ND
     Route: 042
     Dates: start: 20171031, end: 20171106
  3. KARDEGIC [Concomitant]
     Active Substance: ASPIRIN DL-LYSINE
     Dosage: 75 MILLIGRAM DAILY;
     Route: 048
  4. FLAGYL [Suspect]
     Active Substance: METRONIDAZOLE\METRONIDAZOLE HYDROCHLORIDE
     Indication: OSTEOMYELITIS
     Dosage: 1500 MILLIGRAM DAILY;
     Route: 048
     Dates: start: 20171031, end: 20171106
  5. OMEPRAZOLE. [Concomitant]
     Active Substance: OMEPRAZOLE
     Indication: GASTROOESOPHAGEAL REFLUX DISEASE
     Dosage: 20 MILLIGRAM DAILY;
     Route: 048
  6. PERINDOPRIL [Concomitant]
     Active Substance: PERINDOPRIL
     Indication: HYPERTENSION
     Dosage: 10 MILLIGRAM DAILY;
     Route: 048
  7. INDAPAMIDE. [Concomitant]
     Active Substance: INDAPAMIDE
     Indication: HYPERTENSION
     Dosage: 2.45 MILLIGRAM DAILY;
     Route: 048

REACTIONS (1)
  - Acute kidney injury [Recovered/Resolved]

NARRATIVE: CASE EVENT DATE: 20171106
